FAERS Safety Report 25659211 (Version 1)
Quarter: 2025Q3

REPORT INFORMATION
  Report Type: Report from Study
  Country: CA (occurrence: CA)
  Receive Date: 20250808
  Receipt Date: 20250808
  Transmission Date: 20251021
  Serious: Yes (Hospitalization)
  Sender: NOVARTIS
  Company Number: CA-002147023-NVSC2025CA106660

PATIENT
  Age: 56 Year
  Sex: Female

DRUGS (3)
  1. COSENTYX [Suspect]
     Active Substance: SECUKINUMAB
     Indication: Ankylosing spondylitis
     Dosage: 300 MG, QW (WEEKS 0, 1, 2, 3, AND 4,)
     Route: 058
     Dates: start: 20250623
  2. COSENTYX [Suspect]
     Active Substance: SECUKINUMAB
     Indication: Psoriatic arthropathy
     Dosage: 300 MG, QMO
     Route: 058
  3. COSENTYX [Suspect]
     Active Substance: SECUKINUMAB
     Dosage: 300 MG, QMO
     Route: 058
     Dates: start: 20250723

REACTIONS (18)
  - Blister infected [Unknown]
  - Pruritus [Unknown]
  - Viral infection [Unknown]
  - Pyrexia [Unknown]
  - Cough [Unknown]
  - Dizziness [Unknown]
  - Migraine [Unknown]
  - Malaise [Unknown]
  - Skin lesion [Unknown]
  - Hypotension [Unknown]
  - Balance disorder [Unknown]
  - Nystagmus [Unknown]
  - Confusional state [Unknown]
  - Time perception altered [Unknown]
  - Visual impairment [Unknown]
  - Arthropod bite [Recovering/Resolving]
  - Erythema [Recovering/Resolving]
  - Feeling hot [Recovering/Resolving]

NARRATIVE: CASE EVENT DATE: 20250625
